FAERS Safety Report 9063178 (Version 2)
Quarter: 2013Q1

REPORT INFORMATION
  Report Type: Report from Study
  Country: US (occurrence: US)
  Receive Date: 20130213
  Receipt Date: 20130219
  Transmission Date: 20140127
  Serious: Yes (Other)
  Sender: FDA-Public Use
  Company Number: US-ABBOTT-13P-163-1042516-00

PATIENT
  Sex: Female

DRUGS (13)
  1. HUMIRA [Suspect]
     Indication: CROHN^S DISEASE
  2. ALDACTAZIDE [Concomitant]
     Indication: BLOOD PRESSURE
     Dosage: 50/50 MG DAILY
  3. TOPROL XL [Concomitant]
     Indication: BLOOD PRESSURE
     Dosage: DAILY
  4. TRILIPIX [Concomitant]
     Indication: BLOOD CHOLESTEROL
     Dosage: DAILY
  5. LISINOPRIL [Concomitant]
     Indication: BLOOD PRESSURE
     Dosage: DAILY
  6. LASIX [Concomitant]
     Indication: JOINT SWELLING
  7. COLESTIPOL [Concomitant]
     Indication: DIARRHOEA
     Dosage: DAILY
  8. LANTUS [Concomitant]
     Indication: DIABETES MELLITUS
  9. DAILY MULTIVITAMIN [Concomitant]
     Indication: PRODUCT USED FOR UNKNOWN INDICATION
     Dosage: DAILY
  10. VITAMIN B 12 [Concomitant]
     Indication: PRODUCT USED FOR UNKNOWN INDICATION
  11. VITAMIN B6 [Concomitant]
     Indication: PRODUCT USED FOR UNKNOWN INDICATION
  12. VITAMIN D3 [Concomitant]
     Indication: PRODUCT USED FOR UNKNOWN INDICATION
  13. VITAMIN D2 [Concomitant]
     Indication: PRODUCT USED FOR UNKNOWN INDICATION

REACTIONS (5)
  - Loss of consciousness [Recovered/Resolved]
  - Fall [Recovered/Resolved]
  - Middle ear effusion [Unknown]
  - Wrong technique in drug usage process [Unknown]
  - Incorrect dose administered [Unknown]
